FAERS Safety Report 20967536 (Version 1)
Quarter: 2022Q2

REPORT INFORMATION
  Report Type: Spontaneous
  Country: US (occurrence: US)
  Receive Date: 20220616
  Receipt Date: 20220616
  Transmission Date: 20220721
  Serious: No
  Sender: FDA-Public Use
  Company Number: US-PFIZER INC-202200840413

PATIENT
  Age: 66 Year
  Sex: Male
  Weight: 99.79 kg

DRUGS (2)
  1. GABAPENTIN [Suspect]
     Active Substance: GABAPENTIN
     Indication: Pain
     Dosage: UNK
  2. CELECOXIB [Suspect]
     Active Substance: CELECOXIB
     Indication: Pain
     Dosage: UNK

REACTIONS (1)
  - Drug ineffective [Unknown]
